FAERS Safety Report 11234130 (Version 5)
Quarter: 2015Q4

REPORT INFORMATION
  Report Type: Spontaneous
  Country: US (occurrence: US)
  Receive Date: 20150702
  Receipt Date: 20151126
  Transmission Date: 20160304
  Serious: Yes (Hospitalization)
  Sender: FDA-Public Use
  Company Number: US-PFIZER INC-2015214829

PATIENT
  Age: 64 Year
  Sex: Male
  Weight: 92 kg

DRUGS (7)
  1. PROSCAR [Concomitant]
     Active Substance: FINASTERIDE
     Dosage: UNK
  2. LIPITOR [Concomitant]
     Active Substance: ATORVASTATIN CALCIUM
     Dosage: UNK
     Dates: end: 20150427
  3. LASIX [Concomitant]
     Active Substance: FUROSEMIDE
     Dosage: UNK
  4. SUTENT [Suspect]
     Active Substance: SUNITINIB MALATE
     Indication: RENAL CANCER STAGE IV
     Dosage: 50 MG, CYCLIC
     Dates: start: 20150519
  5. ASPIRIN. [Concomitant]
     Active Substance: ASPIRIN
     Dosage: UNK
     Dates: end: 20150427
  6. MOUTH WASH [Concomitant]
     Dosage: UNK
  7. SUTENT [Suspect]
     Active Substance: SUNITINIB MALATE
     Dosage: 37.5 MG DAILY CYCLIC (FOR 2 WEEKS ON/1 WEEK OFF)
     Dates: start: 20150616, end: 20150902

REACTIONS (18)
  - Dehydration [Unknown]
  - Diarrhoea [Recovered/Resolved]
  - Parosmia [Unknown]
  - Thyroid function test abnormal [Unknown]
  - Dry mouth [Recovering/Resolving]
  - Swollen tongue [Unknown]
  - Electrolyte imbalance [Unknown]
  - Dizziness [Unknown]
  - Blood glucose decreased [Unknown]
  - Decreased appetite [Unknown]
  - Weight decreased [Unknown]
  - Renal disorder [Unknown]
  - Fatigue [Recovering/Resolving]
  - Nausea [Recovered/Resolved]
  - Oral pain [Unknown]
  - Asthenia [Unknown]
  - Mouth swelling [Unknown]
  - Dysgeusia [Unknown]
